FAERS Safety Report 6066513 (Version 4)
Quarter: 2023Q2

REPORT INFORMATION
  Report Type: Spontaneous
  Country: JP (occurrence: JP)
  Receive Date: 20060616
  Receipt Date: 20230605
  Transmission Date: 20230722
  Serious: Yes (Death, Other)
  Sender: FDA-Public Use
  Company Number: None

PATIENT
  Age: 42 Year
  Sex: Male

DRUGS (2)
  1. CYCLOSPORINE [Suspect]
     Active Substance: CYCLOSPORINE
     Indication: Prophylaxis against graft versus host disease
     Dosage: UNK
     Route: 042
  2. METHOTREXATE [Concomitant]
     Active Substance: METHOTREXATE
     Indication: Prophylaxis against graft versus host disease
     Dosage: UNK (SHORT TERM)
     Route: 065

REACTIONS (9)
  - Acute myeloid leukaemia recurrent [Fatal]
  - Hyperthyroidism [Recovered/Resolved]
  - Thyroxine free increased [Recovered/Resolved]
  - Blood thyroid stimulating hormone decreased [Recovered/Resolved]
  - Tri-iodothyronine free increased [Recovered/Resolved]
  - Tachycardia [Recovered/Resolved]
  - Anti-thyroid antibody [Unknown]
  - Acute graft versus host disease in skin [Recovered/Resolved]
  - Cytomegalovirus test positive [Unknown]
